FAERS Safety Report 13185349 (Version 1)
Quarter: 2020Q3

REPORT INFORMATION
  Report Type: Report from Study
  Country: UA (occurrence: UA)
  Receive Date: 20170203
  Receipt Date: 20170203
  Transmission Date: 20201105
  Serious: Yes (Hospitalization, Disabling)
  Sender: FDA-Public Use
  Company Number: UA-US WORLDMEDS, LLC-USW201609-000631

PATIENT
  Age: 64 Year
  Sex: Male
  Weight: 61.1 kg

DRUGS (1)
  1. MYOBLOC [Suspect]
     Active Substance: RIMABOTULINUMTOXINB
     Indication: SALIVARY HYPERSECRETION
     Dates: start: 20160125

REACTIONS (3)
  - Malnutrition [Recovered/Resolved with Sequelae]
  - Disease progression [Recovered/Resolved with Sequelae]
  - Amyotrophic lateral sclerosis [Recovered/Resolved with Sequelae]

NARRATIVE: CASE EVENT DATE: 20160801
